FAERS Safety Report 13822536 (Version 1)
Quarter: 2017Q3

REPORT INFORMATION
  Report Type: Spontaneous
  Country: US (occurrence: US)
  Receive Date: 20170801
  Receipt Date: 20170801
  Transmission Date: 20171127
  Serious: Yes (Death, Life-Threatening, Other)
  Sender: FDA-Public Use
  Company Number: US-NAPPMUNDI-GBR-2017-0047315

PATIENT
  Sex: Male
  Weight: 3.5 kg

DRUGS (2)
  1. MORPHINE SULFATE. [Suspect]
     Active Substance: MORPHINE SULFATE
     Indication: PAIN
     Route: 065
  2. MORPHINE SULFATE. [Suspect]
     Active Substance: MORPHINE SULFATE
     Indication: SEDATIVE THERAPY

REACTIONS (9)
  - Hepatosplenomegaly [Unknown]
  - Respiratory distress [Unknown]
  - Disease progression [Unknown]
  - Hypotension [Unknown]
  - Multiple organ dysfunction syndrome [Fatal]
  - Coagulopathy [Unknown]
  - General physical health deterioration [Unknown]
  - Pulmonary hypertension [Unknown]
  - Lymphadenopathy [Unknown]
